FAERS Safety Report 5676911-6 (Version None)
Quarter: 2008Q1

REPORT INFORMATION
  Report Type: 
  Country: None (occurrence: None)
  Receive Date: 20080324
  Receipt Date: 20080312
  Transmission Date: 20080703
  Serious: Yes (Hospitalization, Other)
  Sender: FDA-Public Use
  Company Number: US-ELI_LILLY_AND_COMPANY-US200803002863

PATIENT
  Sex: Male
  Weight: 88.435 kg

DRUGS (10)
  1. ZYPREXA [Suspect]
     Dosage: 10 MG, DAILY (1/D)
     Dates: start: 19951210, end: 19970507
  2. ZYPREXA [Suspect]
     Dosage: 20 MG, DAILY (1/D)
     Dates: start: 19970508, end: 19970904
  3. ZYPREXA [Suspect]
     Dosage: 25 MG, DAILY (1/D)
     Dates: start: 19970905, end: 19980921
  4. ZYPREXA [Suspect]
     Dosage: 30 MG, DAILY (1/D)
     Dates: start: 19980922, end: 20011003
  5. ZYPREXA [Suspect]
     Dosage: 35 MG, DAILY (1/D)
     Dates: start: 20011004, end: 20041022
  6. ZYPREXA [Suspect]
     Dosage: 10 MG, UNK
     Dates: start: 20041023, end: 20041119
  7. ZYPREXA [Suspect]
     Dosage: 5 MG, UNK
     Dates: start: 20041120, end: 20041204
  8. TEGRETOL [Concomitant]
     Dates: start: 19980715
  9. REMERON [Concomitant]
     Dates: start: 19981120
  10. INDERAL [Concomitant]
     Dates: start: 19971104

REACTIONS (11)
  - BLOOD CHOLESTEROL INCREASED [None]
  - BLOOD TRIGLYCERIDES INCREASED [None]
  - CONVULSION [None]
  - DIABETES MELLITUS [None]
  - HAEMORRHOIDS [None]
  - HYPERTENSION [None]
  - INCISIONAL HERNIA [None]
  - INTERVERTEBRAL DISC PROTRUSION [None]
  - METABOLIC DISORDER [None]
  - SLEEP APNOEA SYNDROME [None]
  - WOUND INFECTION [None]
